FAERS Safety Report 23513047 (Version 1)
Quarter: 2024Q1

REPORT INFORMATION
  Report Type: Spontaneous
  Country: US (occurrence: None)
  Receive Date: 20240209
  Receipt Date: 20240209
  Transmission Date: 20240409
  Serious: Yes (Other)
  Sender: FDA-Public Use
  Company Number: None

PATIENT
  Age: 52 Year
  Sex: Male
  Weight: 64.35 kg

DRUGS (7)
  1. REPATHA [Suspect]
     Active Substance: EVOLOCUMAB
     Dosage: OTHER QUANTITY : 1 INJECTION(S);?OTHER FREQUENCY : EVERY 2 WEEKS;?
     Dates: start: 20240108
  2. Aspirin 350 mgs [Concomitant]
  3. ATORVASTATIN [Concomitant]
     Active Substance: ATORVASTATIN
  4. Metoprolol 12.5mg [Concomitant]
  5. Probiotic 60 billion [Concomitant]
  6. VITAMINS [Concomitant]
     Active Substance: VITAMINS
  7. Vitamin C 500mg [Concomitant]

REACTIONS (1)
  - Back pain [None]

NARRATIVE: CASE EVENT DATE: 20240117
